FAERS Safety Report 10133464 (Version 2)
Quarter: 2014Q2

REPORT INFORMATION
  Report Type: Spontaneous
  Country: JP (occurrence: JP)
  Receive Date: 20140428
  Receipt Date: 20140613
  Transmission Date: 20141212
  Serious: Yes (Other)
  Sender: FDA-Public Use
  Company Number: JP-SA-2014SA050090

PATIENT
  Age: 42 Year
  Sex: Female

DRUGS (6)
  1. LASIX [Suspect]
     Indication: ACUTE LYMPHOCYTIC LEUKAEMIA
     Dosage: 20 MG/BODY?STRENGTH:20 MG
     Route: 042
     Dates: start: 20131214, end: 20131214
  2. LASIX [Suspect]
     Indication: ACUTE LYMPHOCYTIC LEUKAEMIA
     Route: 042
     Dates: start: 20131217, end: 20131217
  3. LASIX [Suspect]
     Indication: ACUTE LYMPHOCYTIC LEUKAEMIA
     Route: 042
     Dates: start: 20131219, end: 20131219
  4. ENDOXAN [Concomitant]
     Indication: ACUTE LYMPHOCYTIC LEUKAEMIA
     Dosage: DOSE: 1590MG/BODY/DAY
     Route: 042
     Dates: start: 20131209, end: 20131209
  5. DAUNOMYCIN [Concomitant]
     Indication: ACUTE LYMPHOCYTIC LEUKAEMIA
     Dosage: DOSE: 79MG/BODY/DAY
     Route: 042
     Dates: start: 20131209, end: 20131211
  6. LEUNASE [Concomitant]
     Indication: ACUTE LYMPHOCYTIC LEUKAEMIA
     Dosage: DOSE: 3900 UNITS EVERY OTHER DAY
     Route: 042
     Dates: start: 20131216, end: 20131220

REACTIONS (1)
  - Loss of consciousness [Recovered/Resolved]
